FAERS Safety Report 8319159-9 (Version None)
Quarter: 2012Q2

REPORT INFORMATION
  Report Type: 
  Country: None (occurrence: None)
  Receive Date: 20120427
  Receipt Date: 20120412
  Transmission Date: 20120825
  Serious: No
  Sender: FDA-Public Use
  Company Number: US-JNJFOC-20120406649

PATIENT
  Sex: Female

DRUGS (2)
  1. INVEGA SUSTENNA [Suspect]
     Indication: SCHIZOAFFECTIVE DISORDER
     Dosage: FOR 2 MONTHS
     Route: 030
  2. CYMBALTA [Concomitant]
     Route: 065

REACTIONS (1)
  - GALACTORRHOEA [None]
